FAERS Safety Report 11371200 (Version 1)
Quarter: 2015Q3

REPORT INFORMATION
  Report Type: Spontaneous
  Country: US (occurrence: US)
  Receive Date: 20150812
  Receipt Date: 20150812
  Transmission Date: 20151125
  Serious: No
  Sender: FDA-Public Use
  Company Number: US-PFIZER INC-2015264527

PATIENT
  Sex: Female

DRUGS (7)
  1. IBUPROFEN. [Concomitant]
     Active Substance: IBUPROFEN
     Indication: ANTIINFLAMMATORY THERAPY
     Dosage: ONCE IN A WHILE SHE WILL TAKE IBUPROFEN 800
  2. POTASSIUM [Concomitant]
     Active Substance: POTASSIUM
     Dosage: TAKES WHEN SHE TAKES THE WATER PILL, TAKES AT THE SAME TIME AS THE WATER PILL
  3. CALCIUM [Concomitant]
     Active Substance: CALCIUM
     Dosage: SOMETIMES
  4. ASPIRIN. [Concomitant]
     Active Substance: ASPIRIN
     Indication: ANTIINFLAMMATORY THERAPY
  5. ESTRING [Suspect]
     Active Substance: ESTRADIOL
     Dosage: UNK
  6. MAGNESIUM [Concomitant]
     Active Substance: MAGNESIUM
     Dosage: ONCE IN A WHILE
  7. VITAMIN D [Concomitant]
     Active Substance: CHOLECALCIFEROL
     Dosage: SOMETIMES

REACTIONS (1)
  - Cataract [Unknown]
